FAERS Safety Report 5641060-X (Version None)
Quarter: 2008Q1

REPORT INFORMATION
  Report Type: 
  Country: None (occurrence: None)
  Receive Date: 20080227
  Receipt Date: 20080220
  Transmission Date: 20080703
  Serious: Yes (Other)
  Sender: FDA-Public Use
  Company Number: US-ASTRAZENECA-2008UW02250

PATIENT
  Age: 61 Year
  Sex: Female
  Weight: 69.5 kg

DRUGS (18)
  1. ARIMIDEX [Suspect]
     Indication: BREAST CANCER
     Route: 048
     Dates: start: 20060920
  2. ARIMIDEX [Suspect]
     Indication: OESTROGEN RECEPTOR ASSAY POSITIVE
     Route: 048
     Dates: start: 20060920
  3. ARIMIDEX [Suspect]
     Indication: PROGESTERONE RECEPTOR ASSAY POSITIVE
     Route: 048
     Dates: start: 20060920
  4. VITAMINS [Concomitant]
  5. AMLODIPINE [Concomitant]
  6. ACCUPRIL [Concomitant]
  7. NEXIUM [Concomitant]
  8. ASACOL [Concomitant]
  9. EFFEXOR [Concomitant]
  10. CELEBREX [Concomitant]
  11. ASPIRIN [Concomitant]
  12. CLONAZEPAM [Concomitant]
  13. METOPROLOL TARTRATE [Concomitant]
  14. VALTREX [Concomitant]
  15. LEVAQUIN [Concomitant]
  16. TANDEM PLUS [Concomitant]
  17. FEXOFENADINE HYDROCHLORIDE [Concomitant]
  18. BONIVA [Concomitant]

REACTIONS (31)
  - ALOPECIA [None]
  - ANOREXIA [None]
  - ARTHRALGIA [None]
  - BLOOD IRON DECREASED [None]
  - BREAST SWELLING [None]
  - BREAST TENDERNESS [None]
  - CONSTIPATION [None]
  - DIARRHOEA [None]
  - DISEASE RECURRENCE [None]
  - DIZZINESS [None]
  - DRY MOUTH [None]
  - FATIGUE [None]
  - HEADACHE [None]
  - HOT FLUSH [None]
  - HYPERTENSION [None]
  - INSOMNIA [None]
  - LUNG NEOPLASM [None]
  - NAUSEA [None]
  - PAIN [None]
  - PRURITUS [None]
  - RED BLOOD CELL ABNORMALITY [None]
  - SINUSITIS [None]
  - SOMNOLENCE [None]
  - STOMACH DISCOMFORT [None]
  - THROAT IRRITATION [None]
  - VAGINAL HAEMORRHAGE [None]
  - VITAMIN B12 DEFICIENCY [None]
  - VITAMIN D DEFICIENCY [None]
  - VITAMIN E DEFICIENCY [None]
  - WEIGHT INCREASED [None]
  - WEIGHT LOSS POOR [None]
